FAERS Safety Report 19184567 (Version 1)
Quarter: 2021Q2

REPORT INFORMATION
  Report Type: Report from Study
  Country: GR (occurrence: GR)
  Receive Date: 20210427
  Receipt Date: 20210427
  Transmission Date: 20210717
  Serious: Yes (Other)
  Sender: FDA-Public Use
  Company Number: GR-ACCORD-222613

PATIENT
  Age: 80 Year
  Sex: Male

DRUGS (1)
  1. METHOTREXATE. [Suspect]
     Active Substance: METHOTREXATE
     Indication: PSORIASIS

REACTIONS (4)
  - Pleural effusion [Recovered/Resolved]
  - Pleurisy [Recovered/Resolved]
  - Serositis [Recovered/Resolved]
  - Joint stiffness [Recovered/Resolved]
